FAERS Safety Report 6975017-3 (Version None)
Quarter: 2010Q3

REPORT INFORMATION
  Report Type: 
  Country: None (occurrence: None)
  Receive Date: 20100910
  Receipt Date: 20090115
  Transmission Date: 20110219
  Serious: No
  Sender: FDA-Public Use
  Company Number: US-WYE-H07756909

PATIENT
  Age: 29 Year
  Sex: Male

DRUGS (3)
  1. PRISTIQ [Suspect]
     Indication: OBSESSIVE-COMPULSIVE DISORDER
     Route: 048
     Dates: start: 20090101, end: 20090114
  2. PRISTIQ [Suspect]
     Route: 048
     Dates: start: 20090115
  3. MINOXIDIL [Concomitant]

REACTIONS (2)
  - FATIGUE [None]
  - HEADACHE [None]
